FAERS Safety Report 22594729 (Version 2)
Quarter: 2023Q2

REPORT INFORMATION
  Report Type: Spontaneous
  Country: IT (occurrence: IT)
  Receive Date: 20230613
  Receipt Date: 20230622
  Transmission Date: 20230722
  Serious: Yes (Life-Threatening, Other)
  Sender: FDA-Public Use
  Company Number: IT-BAYER-2023A074460

PATIENT
  Age: 67 Year
  Sex: Female

DRUGS (5)
  1. HEPARIN SODIUM [Interacting]
     Active Substance: HEPARIN SODIUM
     Dosage: UNK (LOW MOLECULAR WEIGHT)
  2. ASPIRIN [Interacting]
     Active Substance: ASPIRIN
     Dosage: UNK
  3. IBRUTINIB [Suspect]
     Active Substance: IBRUTINIB
     Indication: Chronic lymphocytic leukaemia
     Dosage: UNK
  4. COLCHICINE [Suspect]
     Active Substance: COLCHICINE
     Dosage: UNK
  5. IBUPROFEN [Concomitant]
     Active Substance: IBUPROFEN
     Dosage: UNK

REACTIONS (3)
  - Labelled drug-drug interaction medication error [Unknown]
  - Pericardial haemorrhage [Unknown]
  - Pericardial effusion [Unknown]
